FAERS Safety Report 6550703-8 (Version None)
Quarter: 2010Q1

REPORT INFORMATION
  Report Type: 
  Country: None (occurrence: None)
  Receive Date: 20100125
  Receipt Date: 20091229
  Transmission Date: 20100710
  Serious: No
  Sender: FDA-Public Use
  Company Number: US-TYCO HEALTHCARE/MALLINCKRODT-T200902380

PATIENT
  Sex: Male
  Weight: 81.633 kg

DRUGS (2)
  1. OPTIRAY 350 [Suspect]
     Indication: COMPUTERISED TOMOGRAM
     Dosage: 150 ML, SINGLE
     Dates: start: 20091223, end: 20091223
  2. BACTRIM [Concomitant]
     Dosage: UNK

REACTIONS (4)
  - CHILLS [None]
  - PRURITUS [None]
  - PYREXIA [None]
  - RASH GENERALISED [None]
